FAERS Safety Report 7626787-2 (Version None)
Quarter: 2011Q3

REPORT INFORMATION
  Report Type: 
  Country: None (occurrence: None)
  Receive Date: 20110721
  Receipt Date: 20110714
  Transmission Date: 20111222
  Serious: Yes (Hospitalization)
  Sender: FDA-Public Use
  Company Number: MX-SANOFI-AVENTIS-2011SA045255

PATIENT
  Age: 88 Year
  Sex: Female
  Weight: 65 kg

DRUGS (6)
  1. INSULIN GLARGINE [Suspect]
     Indication: TYPE 2 DIABETES MELLITUS
     Route: 058
     Dates: start: 20060101, end: 20110515
  2. AMARYL [Suspect]
     Indication: TYPE 2 DIABETES MELLITUS
     Route: 048
     Dates: start: 20060101, end: 20110515
  3. BI-EUGLUCON [Concomitant]
     Indication: TYPE 2 DIABETES MELLITUS
     Dates: start: 20060101, end: 20110515
  4. AMLODIPINE/VALSARTAN [Concomitant]
     Route: 048
     Dates: start: 20060101
  5. ATIVAN [Concomitant]
     Route: 048
     Dates: start: 20110101
  6. INSULIN GLARGINE [Suspect]
     Dosage: 18 IU IN THE MORNING AND 13 IU AT NIGHT
     Route: 058
     Dates: start: 20110522

REACTIONS (5)
  - PYELONEPHRITIS [None]
  - PYREXIA [None]
  - DYSURIA [None]
  - PAIN [None]
  - HYPERGLYCAEMIA [None]
